FAERS Safety Report 24735066 (Version 1)
Quarter: 2024Q4

REPORT INFORMATION
  Report Type: Report from Study
  Country: DE (occurrence: DE)
  Receive Date: 20241215
  Receipt Date: 20241215
  Transmission Date: 20250115
  Serious: Yes (Hospitalization)
  Sender: ROCHE
  Company Number: DE-ROCHE-10000156244

PATIENT
  Age: 60 Year
  Sex: Female

DRUGS (1)
  1. OCREVUS [Suspect]
     Active Substance: OCRELIZUMAB
     Indication: Multiple sclerosis
     Route: 065
     Dates: start: 20191219, end: 20230210

REACTIONS (3)
  - Genital herpes [Recovering/Resolving]
  - Genital infection fungal [Recovering/Resolving]
  - Genital infection bacterial [Recovering/Resolving]

NARRATIVE: CASE EVENT DATE: 20240816
